FAERS Safety Report 17699460 (Version 1)
Quarter: 2020Q2

REPORT INFORMATION
  Report Type: Spontaneous
  Country: US (occurrence: US)
  Receive Date: 20200423
  Receipt Date: 20200423
  Transmission Date: 20200714
  Serious: No
  Sender: FDA-Public Use
  Company Number: US-GRANULES INDIA LIMITED-2083075

PATIENT
  Sex: Female

DRUGS (1)
  1. ACETAMINOPHEN EXTENDED-RELEASE TABLETS USP, 650 MG (OTC)-ANDA: 211544 [Suspect]
     Active Substance: ACETAMINOPHEN
     Indication: MYALGIA
     Route: 065

REACTIONS (4)
  - Pain in extremity [Unknown]
  - Back pain [Unknown]
  - Drug ineffective [Unknown]
  - Pain [Unknown]
